FAERS Safety Report 5329481-6 (Version None)
Quarter: 2007Q2

REPORT INFORMATION
  Report Type: 
  Country: None (occurrence: None)
  Receive Date: 20070221
  Receipt Date: 20060524
  Transmission Date: 20071010
  Serious: Yes (Other)
  Sender: FDA-Public Use
  Company Number: BDI-008281

PATIENT
  Age: 48 Year
  Sex: Female

DRUGS (2)
  1. ISOVUE-370 [Suspect]
     Indication: ABDOMINAL PAIN
     Dosage: 100 ML ONCE IV
     Route: 042
     Dates: start: 20060524, end: 20060524
  2. ISOVUE-370 [Suspect]
     Indication: COMPUTERISED TOMOGRAM ABDOMEN
     Dosage: 100 ML ONCE IV
     Route: 042
     Dates: start: 20060524, end: 20060524

REACTIONS (1)
  - ANAPHYLACTOID REACTION [None]
